FAERS Safety Report 9140283 (Version 1)
Quarter: 2013Q1

REPORT INFORMATION
  Report Type: Spontaneous
  Country: CN (occurrence: CN)
  Receive Date: 20130305
  Receipt Date: 20130305
  Transmission Date: 20140127
  Serious: Yes (Death, Other)
  Sender: FDA-Public Use
  Company Number: CN-PFIZER INC-2008150794

PATIENT
  Age: 64 Year
  Sex: Male

DRUGS (3)
  1. OXALIPLATIN [Suspect]
     Indication: COLON CANCER METASTATIC
     Dosage: UNK
  2. FLUOROURACIL [Concomitant]
     Indication: COLON CANCER METASTATIC
     Dosage: UNK
  3. LEUCOVORIN [Concomitant]
     Indication: COLON CANCER METASTATIC
     Dosage: UNK

REACTIONS (5)
  - Thrombocytopenia [Fatal]
  - Cerebral haemorrhage [Fatal]
  - Hypersensitivity [Unknown]
  - Haemolytic anaemia [Unknown]
  - Back pain [Unknown]
